FAERS Safety Report 23999577 (Version 2)
Quarter: 2024Q2

REPORT INFORMATION
  Report Type: Report from Study
  Country: CA (occurrence: CA)
  Receive Date: 20240621
  Receipt Date: 20240628
  Transmission Date: 20240715
  Serious: Yes (Other)
  Sender: FDA-Public Use
  Company Number: CA-OTSUKA-2022_037709

PATIENT
  Age: 38 Year
  Sex: Male

DRUGS (1)
  1. ARIPIPRAZOLE [Suspect]
     Active Substance: ARIPIPRAZOLE
     Indication: Product used for unknown indication
     Dosage: 300 MG, EVERY 4 WEEKS
     Route: 030

REACTIONS (7)
  - Depressed mood [Recovering/Resolving]
  - COVID-19 [Recovered/Resolved]
  - Irritability [Unknown]
  - Product dose omission issue [Unknown]
  - Underdose [Unknown]
  - Unemployment [Unknown]
  - Inappropriate schedule of product administration [Unknown]

NARRATIVE: CASE EVENT DATE: 20220718
